FAERS Safety Report 25608800 (Version 2)
Quarter: 2025Q3

REPORT INFORMATION
  Report Type: Spontaneous
  Country: US (occurrence: US)
  Receive Date: 20250726
  Receipt Date: 20250806
  Transmission Date: 20251021
  Serious: Yes (Other)
  Sender: REGENERON
  Company Number: US-REGENERON PHARMACEUTICALS, INC.-2025-089989

PATIENT
  Sex: Male

DRUGS (3)
  1. EYLEA [Suspect]
     Active Substance: AFLIBERCEPT
     Indication: Diabetic retinopathy
     Dosage: 2 MG, EVERY 4 WEEKS INTO BOTH EYES (FORMULATION: PFS GERRESHEIMER, STRENGTH: 2MG/0.05ML)
     Dates: end: 20231214
  2. EYLEA [Suspect]
     Active Substance: AFLIBERCEPT
     Indication: Diabetic retinal oedema
     Dosage: 2 MG, EVERY 4 WEEKS INTO BOTH EYES (FORMULATION: PFS GERRESHEIMER, STRENGTH: 2MG/0.05ML)
     Dates: start: 20240229, end: 20250515
  3. EYLEA [Suspect]
     Active Substance: AFLIBERCEPT
     Dosage: 2 MG, EVERY 4 WEEKS INTO BOTH EYES (FORMULATION: PFS GERRESHEIMER, STRENGTH: 2MG/0.05ML)
     Dates: start: 20250717

REACTIONS (3)
  - Blindness transient [Recovered/Resolved]
  - Endophthalmitis [Recovered/Resolved]
  - Non-infectious endophthalmitis [Recovered/Resolved]

NARRATIVE: CASE EVENT DATE: 20231220
